FAERS Safety Report 16678358 (Version 2)
Quarter: 2019Q4

REPORT INFORMATION
  Report Type: Spontaneous
  Country: US (occurrence: US)
  Receive Date: 20190807
  Receipt Date: 20191011
  Transmission Date: 20200122
  Serious: Yes (Hospitalization)
  Sender: FDA-Public Use
  Company Number: US-PFIZER INC-2019336566

PATIENT
  Age: 20 Year
  Sex: Female

DRUGS (1)
  1. TERRAMYCIN [Suspect]
     Active Substance: OXYTETRACYCLINE\OXYTETRACYCLINE HYDROCHLORIDE
     Indication: TOOTH EXTRACTION
     Dosage: UNK
     Dates: start: 1957

REACTIONS (10)
  - Multiple allergies [Recovered/Resolved]
  - Pyrexia [Unknown]
  - Visual impairment [Unknown]
  - Abdominal discomfort [Unknown]
  - Off label use [Unknown]
  - Diphtheria [Unknown]
  - Hyperhidrosis [Unknown]
  - Product use in unapproved indication [Unknown]
  - Retching [Unknown]
  - Dyspnoea [Unknown]

NARRATIVE: CASE EVENT DATE: 1957
